FAERS Safety Report 8910722 (Version 1)
Quarter: 2012Q4

REPORT INFORMATION
  Report Type: Spontaneous
  Country: JP (occurrence: None)
  Receive Date: 20121107
  Receipt Date: 20121107
  Transmission Date: 20130627
  Serious: Yes (Other)
  Sender: FDA-Public Use
  Company Number: JP-20120058

PATIENT
  Age: 57 Year
  Sex: Male

DRUGS (2)
  1. LIPIODOL ULTRA FLUIDE (ETHIODIZED OIL) [Suspect]
     Route: 013
  2. ORUBICIN (EPIRUBCIN HYDROCHLORIDE)(EPIRUBCIN HYDROCHLORIDE) [Concomitant]

REACTIONS (4)
  - Off label use [None]
  - Tumour thrombosis [None]
  - Jaundice cholestatic [None]
  - Bile duct obstruction [None]
